FAERS Safety Report 12501583 (Version 2)
Quarter: 2016Q3

REPORT INFORMATION
  Report Type: Report from Study
  Country: US (occurrence: US)
  Receive Date: 20160627
  Receipt Date: 20160728
  Transmission Date: 20161109
  Serious: Yes (Death, Hospitalization, Other)
  Sender: FDA-Public Use
  Company Number: US-GILEAD-2016-0218377

PATIENT
  Age: 71 Year
  Sex: Female

DRUGS (9)
  1. ADCIRCA [Concomitant]
     Active Substance: TADALAFIL
  2. XARELTO [Concomitant]
     Active Substance: RIVAROXABAN
  3. OXYGEN. [Concomitant]
     Active Substance: OXYGEN
  4. AMBRISENTAN [Suspect]
     Active Substance: AMBRISENTAN
     Indication: PULMONARY ARTERIAL HYPERTENSION
     Dosage: 5 MG, QD
     Route: 065
  5. ALLOPURINOL. [Concomitant]
     Active Substance: ALLOPURINOL
  6. AZITHROMYCIN ANHYDROUS. [Concomitant]
     Active Substance: AZITHROMYCIN ANHYDROUS
  7. VELETRI [Concomitant]
     Active Substance: EPOPROSTENOL
  8. DIGOXIN. [Concomitant]
     Active Substance: DIGOXIN
  9. PRAVASTATIN. [Concomitant]
     Active Substance: PRAVASTATIN

REACTIONS (9)
  - Renal tubular necrosis [Unknown]
  - Dyspnoea [Unknown]
  - Fluid retention [Unknown]
  - Oedema peripheral [Unknown]
  - Pleural effusion [Unknown]
  - Death [Fatal]
  - Oxygen saturation decreased [Unknown]
  - Right ventricular failure [Unknown]
  - Respiratory failure [Unknown]

NARRATIVE: CASE EVENT DATE: 20160710
